FAERS Safety Report 7777839 (Version 6)
Quarter: 2013Q3

REPORT INFORMATION
  Report Type: Report from Study
  Country: FR (occurrence: FR)
  Receive Date: 20110128
  Receipt Date: 20130821
  Transmission Date: 20140515
  Serious: Yes (Hospitalization, Other)
  Sender: FDA-Public Use
  Company Number: FR-JNJFOC-20110103343

PATIENT
  Age: 69 Year
  Sex: Female
  Weight: 52 kg

DRUGS (4)
  1. REMICADE [Suspect]
     Indication: COLITIS ULCERATIVE
     Route: 042
     Dates: start: 20100921
  2. REMICADE [Suspect]
     Indication: COLITIS ULCERATIVE
     Dosage: 3RD DOSE
     Route: 042
     Dates: start: 20101103
  3. REMICADE [Suspect]
     Indication: COLITIS ULCERATIVE
     Dosage: 10 MG/KG WAS TREATMENT DOSE FOR THE EVENT
     Route: 042
     Dates: start: 201011
  4. IMUREL [Concomitant]
     Indication: COLITIS ULCERATIVE
     Route: 048
     Dates: start: 200912

REACTIONS (3)
  - Rectal haemorrhage [Recovering/Resolving]
  - Colitis [Unknown]
  - Cytomegalovirus infection [Unknown]
